FAERS Safety Report 25143980 (Version 1)
Quarter: 2025Q2

REPORT INFORMATION
  Report Type: Spontaneous
  Country: PL (occurrence: PL)
  Receive Date: 20250401
  Receipt Date: 20250401
  Transmission Date: 20250717
  Serious: Yes (Other)
  Sender: AUROBINDO
  Company Number: PL-AUROBINDO-AUR-APL-2025-016329

PATIENT
  Age: 67 Year
  Sex: Female

DRUGS (14)
  1. AMOXICILLIN\CLAVULANIC ACID [Suspect]
     Active Substance: AMOXICILLIN\CLAVULANIC ACID
     Indication: Scleroderma
     Route: 065
  2. CEFUROXIME [Suspect]
     Active Substance: CEFUROXIME
     Indication: Scleroderma
     Route: 042
  3. Thymostimulinum [Concomitant]
     Indication: Scleroderma
     Route: 065
  4. AUGMENTIN [Concomitant]
     Active Substance: AMOXICILLIN\CLAVULANATE POTASSIUM
     Indication: Scleroderma
     Route: 065
  5. DAPSONE [Concomitant]
     Active Substance: DAPSONE
     Indication: Scleroderma
     Route: 065
  6. ISOTRETINOIN [Concomitant]
     Active Substance: ISOTRETINOIN
     Indication: Scleroderma
     Route: 065
  7. CIPROFLOXACIN [Concomitant]
     Active Substance: CIPROFLOXACIN
     Indication: Scleroderma
     Route: 065
  8. CEFTRIAXONE [Concomitant]
     Active Substance: CEFTRIAXONE
     Indication: Scleroderma
     Route: 065
  9. TOBRAMYCIN [Concomitant]
     Active Substance: TOBRAMYCIN
     Indication: Scleroderma
     Route: 065
  10. HYDROCORTISONE [Concomitant]
     Active Substance: HYDROCORTISONE
     Indication: Scleroderma
     Route: 065
  11. MUPIROCIN [Concomitant]
     Active Substance: MUPIROCIN
     Indication: Scleroderma
     Route: 065
  12. METHOTREXATE [Concomitant]
     Active Substance: METHOTREXATE
     Indication: Scleroderma
     Route: 065
  13. PREDNISONE [Concomitant]
     Active Substance: PREDNISONE
     Indication: Scleroderma
     Route: 065
  14. MYCOPHENOLATE MOFETIL [Concomitant]
     Active Substance: MYCOPHENOLATE MOFETIL
     Indication: Scleroderma
     Route: 065

REACTIONS (1)
  - Drug ineffective [Unknown]
